FAERS Safety Report 26011385 (Version 1)
Quarter: 2025Q4

REPORT INFORMATION
  Report Type: Report from Study
  Country: US (occurrence: US)
  Receive Date: 20251107
  Receipt Date: 20251107
  Transmission Date: 20260117
  Serious: Yes (Other)
  Sender: GILEAD
  Company Number: US-GILEAD-2025-0735537

PATIENT
  Age: 34 Year
  Sex: Female

DRUGS (1)
  1. AZTREONAM LYSINE [Suspect]
     Active Substance: AZTREONAM LYSINE
     Indication: Cystic fibrosis
     Dosage: 1 VIAL VIANEBULIZER THREE TIMESDAILY FOR 28 DAYS ONFOLLOWED BY 28 DAYS OFF
     Route: 055
     Dates: start: 20250906

REACTIONS (5)
  - Cystic fibrosis gastrointestinal disease [Unknown]
  - Nausea [Unknown]
  - Sleep disorder [Unknown]
  - Loss of personal independence in daily activities [Unknown]
  - Product dose omission issue [Unknown]
